FAERS Safety Report 4698167-3 (Version None)
Quarter: 2005Q2

REPORT INFORMATION
  Report Type: 
  Country: None (occurrence: None)
  Receive Date: 20050623
  Receipt Date: 20050607
  Transmission Date: 20051028
  Serious: Yes (Hospitalization)
  Sender: FDA-Public Use
  Company Number: FR-GLAXOSMITHKLINE-B0383869A

PATIENT
  Age: 73 Year
  Sex: Female

DRUGS (3)
  1. TOPOTECAN [Suspect]
     Indication: OVARIAN CANCER
     Dosage: 4.3MG PER DAY
     Route: 042
     Dates: start: 20050526, end: 20050526
  2. GEMCITABINE [Suspect]
     Indication: OVARIAN CANCER
     Dosage: 1720MG PER DAY
     Route: 042
     Dates: start: 20050526, end: 20050526
  3. ZESTORETIC [Concomitant]
     Dosage: 1UNIT PER DAY
     Route: 065

REACTIONS (2)
  - ABDOMINAL PAIN UPPER [None]
  - NAUSEA [None]
